FAERS Safety Report 15088081 (Version 2)
Quarter: 2018Q3

REPORT INFORMATION
  Report Type: Spontaneous
  Country: US (occurrence: US)
  Receive Date: 20180629
  Receipt Date: 20180703
  Transmission Date: 20181010
  Serious: No
  Sender: FDA-Public Use
  Company Number: US-BIOGEN-2018BI00596849

PATIENT
  Sex: Female

DRUGS (2)
  1. AVONEX [Suspect]
     Active Substance: INTERFERON BETA-1A
     Indication: MULTIPLE SCLEROSIS
     Route: 065
     Dates: start: 20090527
  2. AVONEX [Suspect]
     Active Substance: INTERFERON BETA-1A
     Route: 030
     Dates: start: 20090527, end: 20180524

REACTIONS (5)
  - Malaise [Unknown]
  - Pyrexia [Recovered/Resolved]
  - Gait disturbance [Recovered/Resolved]
  - Drug dose omission [Unknown]
  - Dysphagia [Recovered/Resolved]
